FAERS Safety Report 9734392 (Version 2)
Quarter: 2013Q4

REPORT INFORMATION
  Report Type: Spontaneous
  Country: US (occurrence: US)
  Receive Date: 20131206
  Receipt Date: 20131218
  Transmission Date: 20140711
  Serious: Yes (Death, Other)
  Sender: FDA-Public Use
  Company Number: US-009507513-1312USA002116

PATIENT
  Age: 74 Year
  Sex: Female

DRUGS (1)
  1. TEMODAR [Suspect]
     Indication: PANCREATIC CARCINOMA
     Dosage: 270MG PER DAY
     Route: 048

REACTIONS (1)
  - Pancreatic carcinoma [Fatal]
